FAERS Safety Report 7440566-0 (Version None)
Quarter: 2011Q2

REPORT INFORMATION
  Report Type: 
  Country: None (occurrence: None)
  Receive Date: 20110427
  Receipt Date: 20110420
  Transmission Date: 20111010
  Serious: Yes (Hospitalization)
  Sender: FDA-Public Use
  Company Number: A0924497A

PATIENT
  Sex: Male

DRUGS (2)
  1. ACTOS [Concomitant]
  2. AVANDIA [Suspect]
     Route: 065

REACTIONS (1)
  - CARDIAC DISORDER [None]
